FAERS Safety Report 8232471-7 (Version None)
Quarter: 2012Q1

REPORT INFORMATION
  Report Type: 
  Country: None (occurrence: None)
  Receive Date: 20120323
  Receipt Date: 20120314
  Transmission Date: 20120608
  Serious: Yes (Other)
  Sender: FDA-Public Use
  Company Number: US-ASTRAZENECA-2012SE17439

PATIENT
  Sex: Female

DRUGS (3)
  1. EYE DROPS [Concomitant]
  2. CRESTOR [Suspect]
     Route: 048
  3. CRESTOR [Suspect]
     Route: 048

REACTIONS (3)
  - VISUAL IMPAIRMENT [None]
  - MYALGIA [None]
  - EYE DISORDER [None]
